FAERS Safety Report 7692186 (Version 5)
Quarter: 2013Q2

REPORT INFORMATION
  Report Type: Spontaneous
  Country: US (occurrence: US)
  Receive Date: 20101204
  Receipt Date: 20130405
  Transmission Date: 20140414
  Serious: Yes (Hospitalization, Other)
  Sender: FDA-Public Use
  Company Number: US-BAYER-201042068NA

PATIENT
  Age: 21 Year
  Sex: Female
  Weight: 89.34 kg

DRUGS (4)
  1. YAZ [Suspect]
     Indication: CONTRACEPTION
     Dosage: UNK
     Route: 048
     Dates: start: 20080619, end: 200905
  2. YAZ [Suspect]
     Indication: PREMENSTRUAL SYNDROME
  3. YAZ [Suspect]
     Indication: MENSTRUATION IRREGULAR
  4. IBUPROFEN [Concomitant]
     Indication: PAIN IN EXTREMITY
     Dosage: 200 MG, PRN
     Route: 048

REACTIONS (7)
  - Cholecystitis chronic [None]
  - Gallbladder disorder [None]
  - Pancreatitis [Unknown]
  - Gallbladder cholesterolosis [None]
  - Injury [None]
  - Pain [None]
  - Pain [None]
